FAERS Safety Report 9182444 (Version 1)
Quarter: 2013Q1

REPORT INFORMATION
  Report Type: Spontaneous
  Country: US (occurrence: US)
  Receive Date: 20130322
  Receipt Date: 20130322
  Transmission Date: 20140127
  Serious: No
  Sender: FDA-Public Use
  Company Number: US-BRISTOL-MYERS SQUIBB COMPANY-16752776

PATIENT
  Age: 67 Year
  Sex: Female

DRUGS (1)
  1. ERBITUX [Suspect]
     Indication: ADENOID CYSTIC CARCINOMA
     Dosage: INFUSION EVERY THURSDAY SINCE THREE WEEKS
     Dates: start: 2012

REACTIONS (2)
  - Dermatitis acneiform [Not Recovered/Not Resolved]
  - Rash [Not Recovered/Not Resolved]
